FAERS Safety Report 7963684-7 (Version None)
Quarter: 2011Q4

REPORT INFORMATION
  Report Type: 
  Country: None (occurrence: None)
  Receive Date: 20111208
  Receipt Date: 20111130
  Transmission Date: 20120403
  Serious: Yes (Other)
  Sender: FDA-Public Use
  Company Number: US-BAYER-200941211NA

PATIENT
  Age: 26 Year
  Sex: Male
  Weight: 100 kg

DRUGS (8)
  1. FRESH FROZEN PLASMA [Concomitant]
     Dosage: UNK
     Dates: start: 20060209
  2. PROTAMINE SULFATE [Concomitant]
  3. VANCOMYCIN [Concomitant]
     Dosage: 1 GRAM
     Route: 042
     Dates: start: 20060131
  4. HEPARIN [Concomitant]
  5. RED BLOOD CELLS [Concomitant]
     Dosage: UNK
     Dates: start: 20060209
  6. PLATELETS [Concomitant]
     Dosage: UNK
     Dates: start: 20060209
  7. TRASYLOL [Suspect]
     Indication: VENTRICULAR SEPTAL DEFECT REPAIR
  8. TRASYLOL [Suspect]
     Indication: TRICUSPID VALVE REPLACEMENT
     Dosage: UNK
     Route: 042
     Dates: start: 20060209

REACTIONS (11)
  - RENAL IMPAIRMENT [None]
  - PAIN [None]
  - UNEVALUABLE EVENT [None]
  - RENAL INJURY [None]
  - INJURY [None]
  - ANHEDONIA [None]
  - RENAL FAILURE [None]
  - ANXIETY [None]
  - STRESS [None]
  - FEAR [None]
  - EMOTIONAL DISTRESS [None]
